FAERS Safety Report 19083480 (Version 1)
Quarter: 2021Q2

REPORT INFORMATION
  Report Type: Spontaneous
  Country: US (occurrence: US)
  Receive Date: 20210401
  Receipt Date: 20210401
  Transmission Date: 20210717
  Serious: Yes (Death, Other)
  Sender: FDA-Public Use
  Company Number: US-PURDUE PHARMA-USA-2021-0197744

PATIENT
  Age: 94 Year
  Sex: Female

DRUGS (1)
  1. SENOKOT [Suspect]
     Active Substance: SENNOSIDES
     Indication: CONSTIPATION
     Dosage: 2 TABLET, DAILY
     Route: 048
     Dates: start: 20210107, end: 20210108

REACTIONS (3)
  - Death [Fatal]
  - Therapeutic product effect increased [Unknown]
  - Diarrhoea [Recovered/Resolved]

NARRATIVE: CASE EVENT DATE: 20210107
